FAERS Safety Report 22129118 (Version 1)
Quarter: 2023Q1

REPORT INFORMATION
  Report Type: Report from Study
  Country: CN (occurrence: CN)
  Receive Date: 20230323
  Receipt Date: 20230323
  Transmission Date: 20230417
  Serious: Yes (Other)
  Sender: FDA-Public Use
  Company Number: CN-UCBSA-2023012312

PATIENT

DRUGS (3)
  1. LACOSAMIDE [Suspect]
     Active Substance: LACOSAMIDE
     Indication: Partial seizures
     Dosage: UNK
  2. LEVETIRACETAM [Suspect]
     Active Substance: LEVETIRACETAM
     Indication: Partial seizures
     Dosage: UNK
  3. PERAMPANEL [Concomitant]
     Active Substance: PERAMPANEL
     Indication: Partial seizures
     Dosage: UNK

REACTIONS (13)
  - Seizure [Unknown]
  - Hallucination [Unknown]
  - Somnolence [Unknown]
  - Dizziness [Unknown]
  - Irritability [Unknown]
  - Anxiety [Unknown]
  - Weight increased [Unknown]
  - Headache [Unknown]
  - Memory impairment [Unknown]
  - Nausea [Unknown]
  - Depression [Unknown]
  - Vision blurred [Unknown]
  - Drug ineffective [Unknown]
